FAERS Safety Report 23180397 (Version 4)
Quarter: 2023Q4

REPORT INFORMATION
  Report Type: Spontaneous
  Country: US (occurrence: US)
  Receive Date: 20231114
  Receipt Date: 20231220
  Transmission Date: 20240110
  Serious: No
  Sender: FDA-Public Use
  Company Number: US-OPELLA-2023OHG013212

PATIENT

DRUGS (1)
  1. ICY HOT (MENTHOL) [Suspect]
     Active Substance: MENTHOL
     Dosage: 18,88 G/118 ML

REACTIONS (2)
  - Drug ineffective [Unknown]
  - No adverse event [Unknown]
